FAERS Safety Report 12270816 (Version 3)
Quarter: 2016Q4

REPORT INFORMATION
  Report Type: Spontaneous
  Country: US (occurrence: US)
  Receive Date: 20160415
  Receipt Date: 20161103
  Transmission Date: 20170207
  Serious: Yes (Other)
  Sender: FDA-Public Use
  Company Number: US-TEVA-633083USA

PATIENT
  Age: 54 Year
  Sex: Male

DRUGS (4)
  1. ROPINROLE [Concomitant]
     Dosage: 4 MILLIGRAM DAILY;
  2. ZECUITY [Suspect]
     Active Substance: SUMATRIPTAN SUCCINATE
     Indication: MIGRAINE
     Route: 062
  3. LOSARTAN. [Concomitant]
     Active Substance: LOSARTAN
     Dosage: 25 MILLIGRAM DAILY;
  4. AMLODIPINE [Concomitant]
     Active Substance: AMLODIPINE BESYLATE
     Dosage: 5 MILLIGRAM DAILY;

REACTIONS (18)
  - Application site pain [Recovered/Resolved]
  - Application site rash [Recovered/Resolved]
  - Application site warmth [Recovered/Resolved]
  - Application site burn [Recovered/Resolved]
  - Product adhesion issue [Recovered/Resolved]
  - Dermatitis contact [Recovered/Resolved]
  - Incorrect drug administration duration [Recovered/Resolved]
  - Application site erythema [Recovered/Resolved]
  - Rash erythematous [Recovered/Resolved]
  - Application site discolouration [Recovered/Resolved]
  - Application site irritation [Recovered/Resolved]
  - Application site inflammation [Recovered/Resolved]
  - Product leakage [Recovered/Resolved]
  - Application site pruritus [Recovered/Resolved]
  - Application site erythema [Recovered/Resolved]
  - Drug ineffective [Recovered/Resolved]
  - Application site scab [Recovered/Resolved]
  - Application site discomfort [Recovered/Resolved]

NARRATIVE: CASE EVENT DATE: 20160202
